FAERS Safety Report 6969081-5 (Version None)
Quarter: 2010Q3

REPORT INFORMATION
  Report Type: 
  Country: None (occurrence: None)
  Receive Date: 20100903
  Receipt Date: 20100903
  Transmission Date: 20110219
  Serious: No
  Sender: FDA-Public Use
  Company Number: None

PATIENT
  Sex: Female
  Weight: 63.5036 kg

DRUGS (1)
  1. PRILOSEC [Suspect]
     Indication: DYSPEPSIA
     Dosage: OVER THE COUNTER QD PO OVER SIX YEARS
     Route: 048

REACTIONS (7)
  - ERYTHEMA [None]
  - FOOT FRACTURE [None]
  - GAIT DISTURBANCE [None]
  - GOUT [None]
  - PAIN [None]
  - PAIN IN EXTREMITY [None]
  - STRESS FRACTURE [None]
